FAERS Safety Report 25665156 (Version 2)
Quarter: 2025Q4

REPORT INFORMATION
  Report Type: Spontaneous
  Country: JP (occurrence: JP)
  Receive Date: 20250811
  Receipt Date: 20251008
  Transmission Date: 20260117
  Serious: Yes (Other)
  Sender: OTSUKA
  Company Number: JP-MMM-Otsuka-FGPJ0B3D

PATIENT
  Age: 8 Decade
  Sex: Male

DRUGS (12)
  1. BREXPIPRAZOLE [Suspect]
     Active Substance: BREXPIPRAZOLE
     Indication: Dementia Alzheimer^s type
     Dosage: 2 MG/DAY
     Route: 065
  2. BREXPIPRAZOLE [Suspect]
     Active Substance: BREXPIPRAZOLE
     Indication: Neuropsychological symptoms
  3. BREXPIPRAZOLE [Suspect]
     Active Substance: BREXPIPRAZOLE
     Indication: Irritability
  4. BREXPIPRAZOLE [Suspect]
     Active Substance: BREXPIPRAZOLE
     Indication: Aggression
  5. BLONANSERIN [Concomitant]
     Active Substance: BLONANSERIN
     Indication: Dementia Alzheimer^s type
     Dosage: 20 MG/DAY
     Route: 065
  6. BLONANSERIN [Concomitant]
     Active Substance: BLONANSERIN
     Indication: Neuropsychological symptoms
  7. BLONANSERIN [Concomitant]
     Active Substance: BLONANSERIN
     Indication: Irritability
  8. BLONANSERIN [Concomitant]
     Active Substance: BLONANSERIN
     Indication: Aggression
  9. OLANZAPINE [Concomitant]
     Active Substance: OLANZAPINE
     Indication: Dementia Alzheimer^s type
     Dosage: 10 MG/DAY
     Route: 065
  10. OLANZAPINE [Concomitant]
     Active Substance: OLANZAPINE
     Indication: Neuropsychological symptoms
  11. OLANZAPINE [Concomitant]
     Active Substance: OLANZAPINE
     Indication: Irritability
  12. OLANZAPINE [Concomitant]
     Active Substance: OLANZAPINE
     Indication: Aggression

REACTIONS (2)
  - Akinesia [Unknown]
  - Bradykinesia [Unknown]
